FAERS Safety Report 7435747-6 (Version None)
Quarter: 2011Q2

REPORT INFORMATION
  Report Type: 
  Country: None (occurrence: None)
  Receive Date: 20110425
  Receipt Date: 20110415
  Transmission Date: 20111010
  Serious: Yes (Other)
  Sender: FDA-Public Use
  Company Number: US-ASTRAZENECA-2011SE02923

PATIENT
  Age: 69 Year
  Sex: Female

DRUGS (2)
  1. NEXIUM [Suspect]
     Route: 048
  2. RESTASIS [Concomitant]

REACTIONS (9)
  - ABDOMINAL PAIN UPPER [None]
  - ARTHROPATHY [None]
  - FALL [None]
  - DRY EYE [None]
  - ARTHRALGIA [None]
  - OCULAR HYPERAEMIA [None]
  - EYE BURNS [None]
  - LACRIMATION INCREASED [None]
  - HELICOBACTER INFECTION [None]
